FAERS Safety Report 10417079 (Version 2)
Quarter: 2014Q3

REPORT INFORMATION
  Report Type: Spontaneous
  Country: IT (occurrence: IT)
  Receive Date: 20140828
  Receipt Date: 20140904
  Transmission Date: 20150326
  Serious: Yes (Other)
  Sender: FDA-Public Use
  Company Number: IT-PFIZER INC-2014236125

PATIENT
  Age: 83 Year
  Sex: Male

DRUGS (4)
  1. CORDARONE [Suspect]
     Active Substance: AMIODARONE HYDROCHLORIDE
     Indication: ARRHYTHMIA
     Dosage: 200 MG, DAILY
     Route: 048
  2. TRIATEC [Suspect]
     Active Substance: RAMIPRIL
     Dosage: 5 MG, DAILY
     Route: 048
  3. LASIX [Suspect]
     Active Substance: FUROSEMIDE
     Indication: ARRHYTHMIA
     Dosage: 25 MG, DAILY
     Route: 048
  4. CONGESCOR [Suspect]
     Active Substance: BISOPROLOL
     Dosage: 2.5 MG, DAILY
     Route: 048

REACTIONS (8)
  - Extrasystoles [Unknown]
  - Hypotension [Unknown]
  - Arrhythmia [Unknown]
  - Heart rate irregular [Unknown]
  - Syncope [Unknown]
  - Fatigue [Unknown]
  - Cardiac disorder [Unknown]
  - Asthenia [Unknown]

NARRATIVE: CASE EVENT DATE: 2014
